FAERS Safety Report 12399092 (Version 2)
Quarter: 2016Q3

REPORT INFORMATION
  Report Type: Spontaneous
  Country: US (occurrence: US)
  Receive Date: 20160524
  Receipt Date: 20160708
  Transmission Date: 20161109
  Serious: Yes (Other)
  Sender: FDA-Public Use
  Company Number: US-BAYER-2016-099177

PATIENT
  Sex: Female

DRUGS (1)
  1. MIRENA [Suspect]
     Active Substance: LEVONORGESTREL
     Indication: CONTRACEPTION
     Dosage: 20 MCG/24HR, CONT, 1 DF
     Route: 015
     Dates: start: 2011

REACTIONS (4)
  - Complication of device removal [Not Recovered/Not Resolved]
  - Device difficult to use [None]
  - Embedded device [Not Recovered/Not Resolved]
  - Device breakage [None]

NARRATIVE: CASE EVENT DATE: 20160520
